FAERS Safety Report 16701603 (Version 2)
Quarter: 2019Q3

REPORT INFORMATION
  Report Type: Report from Study
  Country: BR (occurrence: BR)
  Receive Date: 20190814
  Receipt Date: 20190831
  Transmission Date: 20191004
  Serious: Yes (Life-Threatening, Hospitalization, Other)
  Sender: FDA-Public Use
  Company Number: BR-UCBSA-2019033175

PATIENT
  Sex: Female
  Weight: 81 kg

DRUGS (3)
  1. LEVETIRACETAM. [Suspect]
     Active Substance: LEVETIRACETAM
     Dosage: 250 MG AND 750 MG
     Route: 048
     Dates: start: 201905
  2. GARDENAL [PHENOBARBITAL SODIUM] [Concomitant]
     Active Substance: PHENOBARBITAL SODIUM
     Indication: PRODUCT USED FOR UNKNOWN INDICATION
     Dosage: UNK
  3. LEVETIRACETAM. [Suspect]
     Active Substance: LEVETIRACETAM
     Indication: SEIZURE
     Dosage: 250 MILLIGRAM, ONCE DAILY (QD)
     Route: 048
     Dates: start: 201905

REACTIONS (3)
  - Off label use [Unknown]
  - Infarction [Recovered/Resolved]
  - Seizure [Recovering/Resolving]

NARRATIVE: CASE EVENT DATE: 2019
